FAERS Safety Report 10839509 (Version 1)
Quarter: 2015Q1

REPORT INFORMATION
  Report Type: Spontaneous
  Country: US (occurrence: None)
  Receive Date: 20150218
  Receipt Date: 20150218
  Transmission Date: 20150721
  Serious: Yes (Other)
  Sender: FDA-Public Use
  Company Number: US-20150009

PATIENT
  Age: 36 Year
  Sex: Female

DRUGS (1)
  1. DOTAREM [Suspect]
     Active Substance: GADOTERATE MEGLUMINE
     Dosage: 10 MG, 1 IN 1 D, INTRAVENOUS (NOT OTHERWISE SPECIFIED)
     Route: 042
     Dates: start: 20150131, end: 20150131

REACTIONS (4)
  - Flushing [None]
  - Tremor [None]
  - Anxiety [None]
  - Tachycardia [None]

NARRATIVE: CASE EVENT DATE: 20150131
